FAERS Safety Report 21136894 (Version 1)
Quarter: 2022Q3

REPORT INFORMATION
  Report Type: Spontaneous
  Country: US (occurrence: None)
  Receive Date: 20220726
  Receipt Date: 20220726
  Transmission Date: 20221027
  Serious: No
  Sender: FDA-Public Use
  Company Number: None

PATIENT
  Age: 72 Year
  Sex: Female
  Weight: 73.8 kg

DRUGS (11)
  1. ZYRTEC [Suspect]
     Active Substance: CETIRIZINE HYDROCHLORIDE
     Indication: Perennial allergy
     Dosage: OTHER QUANTITY : 1 TABLET(S);?
     Route: 048
     Dates: start: 20030701, end: 20220711
  2. GABAPENTIN [Concomitant]
     Active Substance: GABAPENTIN
  3. LIOTHYRONINE [Concomitant]
     Active Substance: LIOTHYRONINE
  4. LEVOTHYROXINE [Concomitant]
  5. FENOFIBRATE [Concomitant]
     Active Substance: FENOFIBRATE
  6. FAMOTIDINE [Concomitant]
     Active Substance: FAMOTIDINE
  7. FISH OIL [Concomitant]
     Active Substance: FISH OIL
  8. MINERALS\VITAMINS [Concomitant]
     Active Substance: MINERALS\VITAMINS
  9. Methyl B-12 [Concomitant]
  10. ONE-A-DAY NOS [Concomitant]
     Active Substance: MINERALS\VITAMINS
  11. CALCIUM [Concomitant]
     Active Substance: CALCIUM

REACTIONS (6)
  - Cough [None]
  - Secretion discharge [None]
  - Pruritus [None]
  - Withdrawal syndrome [None]
  - Drug dependence [None]
  - Dyspnoea [None]

NARRATIVE: CASE EVENT DATE: 20220711
